FAERS Safety Report 4754014-2 (Version None)
Quarter: 2005Q3

REPORT INFORMATION
  Report Type: 
  Country: None (occurrence: None)
  Receive Date: 20050826
  Receipt Date: 20050311
  Transmission Date: 20060218
  Serious: Yes (Hospitalization, Disabling)
  Sender: FDA-Public Use
  Company Number: US-MERCK-0503USA02646

PATIENT
  Age: 32 Year
  Sex: Female
  Weight: 111 kg

DRUGS (8)
  1. VIOXX [Suspect]
     Indication: BACK PAIN
     Route: 048
     Dates: start: 20040101, end: 20040801
  2. VIOXX [Suspect]
     Indication: ARTHRITIS
     Route: 048
     Dates: start: 20040101, end: 20040801
  3. ADVIL [Concomitant]
     Indication: PAIN
     Route: 065
     Dates: start: 19720101
  4. TYLENOL [Concomitant]
     Indication: PAIN
     Route: 065
     Dates: start: 19720101
  5. TYLENOL [Concomitant]
     Indication: HEADACHE
     Route: 065
     Dates: start: 19720101
  6. ALEVE [Concomitant]
     Indication: PAIN
     Route: 065
     Dates: start: 19720101
  7. ALEVE [Concomitant]
     Indication: HEADACHE
     Route: 065
     Dates: start: 19720101
  8. MOTRIN [Concomitant]
     Indication: PAIN
     Route: 065
     Dates: start: 19720101

REACTIONS (30)
  - ACTIVITIES OF DAILY LIVING IMPAIRED [None]
  - ADVERSE EVENT [None]
  - AGITATION [None]
  - ANGER [None]
  - ANGINA UNSTABLE [None]
  - ANXIETY [None]
  - ARRHYTHMIA [None]
  - ATRIAL FIBRILLATION [None]
  - BLOOD CHOLESTEROL INCREASED [None]
  - BLOOD TRIGLYCERIDES INCREASED [None]
  - CORONARY ARTERY DISEASE [None]
  - CORONARY ARTERY OCCLUSION [None]
  - CULTURE URINE POSITIVE [None]
  - CYTOMEGALOVIRUS INFECTION [None]
  - DECREASED ACTIVITY [None]
  - EMOTIONAL DISTRESS [None]
  - GASTROOESOPHAGEAL REFLUX DISEASE [None]
  - HEART RATE IRREGULAR [None]
  - HYPERLIPIDAEMIA [None]
  - HYPERTENSION [None]
  - METABOLIC ENCEPHALOPATHY [None]
  - MITRAL VALVE INCOMPETENCE [None]
  - MUSCULOSKELETAL CHEST PAIN [None]
  - MYOCARDIAL INFARCTION [None]
  - STRESS [None]
  - TACHYCARDIA [None]
  - THROMBOPHLEBITIS SUPERFICIAL [None]
  - TRANSIENT ISCHAEMIC ATTACK [None]
  - TRICUSPID VALVE INCOMPETENCE [None]
  - VENTRICULAR TACHYCARDIA [None]
